FAERS Safety Report 10768616 (Version 1)
Quarter: 2015Q1

REPORT INFORMATION
  Report Type: Spontaneous
  Country: US (occurrence: None)
  Receive Date: 20150205
  Receipt Date: 20150205
  Transmission Date: 20150721
  Serious: Yes (Death)
  Sender: FDA-Public Use
  Company Number: None

PATIENT
  Age: 15 Year
  Sex: Male
  Weight: 81.1 kg

DRUGS (6)
  1. MITOXANTRONE [Concomitant]
     Active Substance: MITOXANTRONE HYDROCHLORIDE
  2. BORTEZOMIB [Concomitant]
     Active Substance: BORTEZOMIB
  3. INTRATHECAL THERAPY (METHOTREXATE, HYDROCORTISONE, AND CYTARABINE) [Concomitant]
  4. DEXAMETHASONE. [Concomitant]
     Active Substance: DEXAMETHASONE
  5. VINCRISTINE SULFATE LIPOSOME [Suspect]
     Active Substance: VINCRISTINE SULFATE
     Indication: PRECURSOR T-LYMPHOBLASTIC LYMPHOMA/LEUKAEMIA RECURRENT
     Route: 042
     Dates: start: 20141217
  6. PEG/L-ASPARAGINASE [Concomitant]
     Active Substance: PEGASPARGASE

REACTIONS (2)
  - Mental status changes [None]
  - Hepatic failure [None]

NARRATIVE: CASE EVENT DATE: 20150102
